FAERS Safety Report 6530521-7 (Version None)
Quarter: 2010Q1

REPORT INFORMATION
  Report Type: 
  Country: None (occurrence: None)
  Receive Date: 20100107
  Receipt Date: 20091230
  Transmission Date: 20100710
  Serious: Yes (Other)
  Sender: FDA-Public Use
  Company Number: US-ELI_LILLY_AND_COMPANY-US200912006221

PATIENT
  Sex: Male
  Weight: 82.54 kg

DRUGS (4)
  1. BYETTA [Suspect]
     Indication: TYPE 2 DIABETES MELLITUS
     Dosage: 5 UG, 2/D
     Route: 058
     Dates: start: 20040101
  2. BYETTA [Suspect]
     Dosage: 10 UG, 2/D
     Route: 058
     Dates: start: 20040101, end: 20040101
  3. BYETTA [Suspect]
     Dosage: 5 UG, 2/D
     Route: 058
     Dates: start: 20040101
  4. PRANDIN [Concomitant]
     Indication: TYPE 2 DIABETES MELLITUS

REACTIONS (18)
  - AORTIC ANEURYSM [None]
  - BACTERIAL INFECTION [None]
  - BLOOD GLUCOSE DECREASED [None]
  - BLOOD GLUCOSE INCREASED [None]
  - DECREASED APPETITE [None]
  - EYE HAEMORRHAGE [None]
  - FAT EMBOLISM [None]
  - FOOD CRAVING [None]
  - FUNGAL SKIN INFECTION [None]
  - GLAUCOMA [None]
  - HYPERGAMMAGLOBULINAEMIA BENIGN MONOCLONAL [None]
  - INJECTION SITE HAEMATOMA [None]
  - LOCALISED INFECTION [None]
  - OFF LABEL USE [None]
  - PAIN [None]
  - PERIPHERAL ARTERY ANEURYSM [None]
  - SKIN DISCOLOURATION [None]
  - VOCAL CORD DISORDER [None]
